FAERS Safety Report 11786934 (Version 1)
Quarter: 2015Q4

REPORT INFORMATION
  Report Type: Spontaneous
  Country: US (occurrence: US)
  Receive Date: 20151130
  Receipt Date: 20151130
  Transmission Date: 20160305
  Serious: No
  Sender: FDA-Public Use
  Company Number: US-BAYER-2015-472294

PATIENT
  Sex: Female

DRUGS (1)
  1. ALEVE PM [Suspect]
     Active Substance: DIPHENHYDRAMINE HYDROCHLORIDE\NAPROXEN SODIUM
     Indication: SLEEP DISORDER THERAPY
     Dosage: 2 DF, ONCE
     Route: 048
     Dates: start: 20151117, end: 20151117

REACTIONS (4)
  - Drug ineffective for unapproved indication [None]
  - Agitation [Recovered/Resolved]
  - Insomnia [Recovered/Resolved]
  - Energy increased [Recovered/Resolved]

NARRATIVE: CASE EVENT DATE: 20151117
